FAERS Safety Report 7668863-4 (Version None)
Quarter: 2011Q3

REPORT INFORMATION
  Report Type: 
  Country: None (occurrence: None)
  Receive Date: 20110808
  Receipt Date: 20110728
  Transmission Date: 20111222
  Serious: Yes (Other)
  Sender: FDA-Public Use
  Company Number: US-AMGEN-USASP2011031358

PATIENT
  Age: 57 Year
  Sex: Female
  Weight: 69.841 kg

DRUGS (8)
  1. EPOGEN [Suspect]
     Indication: PRODUCT USED FOR UNKNOWN INDICATION
  2. OMEPRAZOLE [Concomitant]
     Dosage: 40 MG, QD
  3. BYSTOLIC [Concomitant]
     Dosage: 2.5 MG, QD
  4. TYLENOL (CAPLET) [Concomitant]
     Dosage: 500 MG, QD
  5. ARANESP [Suspect]
     Indication: RENAL FAILURE CHRONIC
     Dosage: UNK
  6. CITALOPRAM HYDROBROMIDE [Concomitant]
     Dosage: 20 MG, QD
  7. AMLODIPINE [Concomitant]
     Dosage: 2.5 MG, QD
  8. RED BLOOD CELLS [Concomitant]

REACTIONS (1)
  - HAEMOGLOBIN DECREASED [None]
